FAERS Safety Report 16946015 (Version 1)
Quarter: 2019Q4

REPORT INFORMATION
  Report Type: Report from Study
  Country: GB (occurrence: GB)
  Receive Date: 20191022
  Receipt Date: 20191022
  Transmission Date: 20200122
  Serious: Yes (Hospitalization)
  Sender: FDA-Public Use
  Company Number: GB-SAMSUNG BIOEPIS-SB-2019-28013

PATIENT
  Sex: Female

DRUGS (1)
  1. IMRALDI [Suspect]
     Active Substance: ADALIMUMAB
     Indication: PRODUCT USED FOR UNKNOWN INDICATION
     Route: 058
     Dates: start: 201812

REACTIONS (5)
  - Wound [Not Recovered/Not Resolved]
  - Impaired healing [Unknown]
  - Wound complication [Not Recovered/Not Resolved]
  - Subcutaneous abscess [Unknown]
  - Groin abscess [Unknown]
